FAERS Safety Report 7496899-5 (Version None)
Quarter: 2011Q2

REPORT INFORMATION
  Report Type: 
  Country: None (occurrence: None)
  Receive Date: 20110516
  Receipt Date: 20110503
  Transmission Date: 20111010
  Serious: Yes (Death)
  Sender: FDA-Public Use
  Company Number: US-2011-10224

PATIENT
  Age: 39 Year
  Sex: Male

DRUGS (1)
  1. BUSULFEX [Suspect]
     Indication: BONE MARROW TRANSPLANT
     Dosage: INTRAVENOUS
     Route: 042

REACTIONS (2)
  - RENAL FAILURE ACUTE [None]
  - GRAND MAL CONVULSION [None]
